FAERS Safety Report 15001169 (Version 1)
Quarter: 2018Q2

REPORT INFORMATION
  Report Type: Spontaneous
  Country: US (occurrence: US)
  Receive Date: 20180612
  Receipt Date: 20180612
  Transmission Date: 20180711
  Serious: Yes (Other)
  Sender: FDA-Public Use
  Company Number: US-PFIZER INC-2018234291

PATIENT
  Age: 64 Year
  Sex: Male
  Weight: 72.61 kg

DRUGS (5)
  1. OXYCODONE [Suspect]
     Active Substance: OXYCODONE
     Dosage: UNK (120 OR 130 MG)
     Route: 048
     Dates: start: 20180329, end: 20180329
  2. NARCAN [Suspect]
     Active Substance: NALOXONE HYDROCHLORIDE
     Indication: OVERDOSE
     Dosage: 4 MG, SINGLE (ONCE)
     Route: 045
     Dates: start: 20180329, end: 20180329
  3. OXYCODONE [Suspect]
     Active Substance: OXYCODONE
     Indication: BACK PAIN
     Dosage: 15 MG, 3X/DAY
     Route: 048
  4. ONDANSETRON [Concomitant]
     Active Substance: ONDANSETRON
     Dosage: 8 MG, UNK
  5. XANAX [Suspect]
     Active Substance: ALPRAZOLAM
     Indication: BACK PAIN
     Dosage: UNK
     Route: 048
     Dates: start: 20180329, end: 20180329

REACTIONS (12)
  - Diarrhoea [Recovering/Resolving]
  - Lack of spontaneous speech [Recovered/Resolved]
  - Asthenia [Recovering/Resolving]
  - Product use in unapproved indication [Recovered/Resolved]
  - Accidental overdose [Recovered/Resolved]
  - Fall [Recovered/Resolved]
  - Mydriasis [Recovering/Resolving]
  - Loss of consciousness [Recovered/Resolved]
  - Dyspnoea [Recovered/Resolved]
  - Coordination abnormal [Recovered/Resolved]
  - Vomiting [Recovering/Resolving]
  - Dizziness [Recovering/Resolving]

NARRATIVE: CASE EVENT DATE: 20180329
